FAERS Safety Report 5678626-7 (Version None)
Quarter: 2008Q1

REPORT INFORMATION
  Report Type: 
  Country: None (occurrence: None)
  Receive Date: 20080325
  Receipt Date: 20080313
  Transmission Date: 20080703
  Serious: Yes (Hospitalization, Other)
  Sender: FDA-Public Use
  Company Number: US-AMGEN-QUU267840

PATIENT
  Sex: Female

DRUGS (9)
  1. ENBREL [Suspect]
     Indication: RHEUMATOID ARTHRITIS
     Route: 058
     Dates: start: 20050502
  2. LEFLUNOMIDE [Concomitant]
     Dates: start: 20020402
  3. LYRICA [Concomitant]
     Dates: start: 20070628
  4. OMEPRAZOLE [Concomitant]
     Dates: start: 20010928
  5. ALLEGRA [Concomitant]
     Dates: start: 20070514
  6. NORMODYNE [Concomitant]
     Dates: start: 20010320
  7. VYTORIN [Concomitant]
     Dates: start: 20071012
  8. AMITRIPTYLINE HCL [Concomitant]
     Dates: start: 20071012
  9. SOMA [Concomitant]
     Dates: start: 20010928

REACTIONS (3)
  - FALL [None]
  - HIP ARTHROPLASTY [None]
  - OSTEOARTHRITIS [None]
